FAERS Safety Report 18777094 (Version 2)
Quarter: 2021Q1

REPORT INFORMATION
  Report Type: Spontaneous
  Country: AU (occurrence: AU)
  Receive Date: 20210122
  Receipt Date: 20210204
  Transmission Date: 20210419
  Serious: Yes (Hospitalization, Other)
  Sender: FDA-Public Use
  Company Number: AU-TAKEDA-2021TUS003782

PATIENT
  Sex: Female

DRUGS (4)
  1. HYDROCORTISONE. [Concomitant]
     Active Substance: HYDROCORTISONE
     Indication: COLITIS
     Dosage: UNK
  2. ENTYVIO [Suspect]
     Active Substance: VEDOLIZUMAB
     Dosage: UNK
     Route: 065
  3. BUDESONIDE. [Concomitant]
     Active Substance: BUDESONIDE
     Indication: COLITIS
     Dosage: UNK
  4. ENTYVIO [Suspect]
     Active Substance: VEDOLIZUMAB
     Indication: COLITIS
     Dosage: UNK
     Route: 065
     Dates: start: 20201214

REACTIONS (9)
  - Posterior reversible encephalopathy syndrome [Unknown]
  - Hypertension [Unknown]
  - Swelling [Unknown]
  - Status epilepticus [Unknown]
  - Swelling face [Unknown]
  - Feeling abnormal [Unknown]
  - Proteinuria [Unknown]
  - Flushing [Unknown]
  - Colitis [Unknown]
